FAERS Safety Report 6947003-0 (Version None)
Quarter: 2010Q3

REPORT INFORMATION
  Report Type: 
  Country: None (occurrence: None)
  Receive Date: 20100825
  Receipt Date: 20100809
  Transmission Date: 20110219
  Serious: Yes (Hospitalization)
  Sender: FDA-Public Use
  Company Number: 1000015736

PATIENT
  Age: 68 Year
  Sex: Female

DRUGS (6)
  1. ESCITALOPRAM [Suspect]
     Dosage: 10 MG (10 MG, 1 IN 1 D) ORAL
     Route: 048
     Dates: start: 20080101, end: 20100706
  2. APROVEL (TABLETS) [Suspect]
     Dosage: 300 MG (300 MG, 1 IN 1 D), ORAL
     Route: 048
     Dates: start: 20080101, end: 20100706
  3. LYSANXIA (TABLETS) [Concomitant]
  4. DAFLON (TABLETS) [Concomitant]
  5. EFFERALGAN (TABLETS) [Concomitant]
  6. EFFERALGAN CODEIN (TABLETS) [Concomitant]

REACTIONS (9)
  - FALL [None]
  - GENERAL PHYSICAL HEALTH DETERIORATION [None]
  - HEPATIC STEATOSIS [None]
  - HYPERKALAEMIA [None]
  - HYPONATRAEMIA [None]
  - HYPOTHYROIDISM [None]
  - MIXED LIVER INJURY [None]
  - PANCREATITIS [None]
  - RENAL FAILURE [None]
